FAERS Safety Report 7704278-8 (Version None)
Quarter: 2011Q3

REPORT INFORMATION
  Report Type: 
  Country: None (occurrence: None)
  Receive Date: 20110823
  Receipt Date: 20110818
  Transmission Date: 20111222
  Serious: Yes (Life-Threatening, Hospitalization, Other)
  Sender: FDA-Public Use
  Company Number: PHFR2010IE01406

PATIENT
  Sex: Male

DRUGS (7)
  1. CLOZAPINE [Suspect]
     Dosage: 350 MG, QD
     Route: 048
     Dates: start: 20020121
  2. CLONAZEPAM [Suspect]
     Dosage: 1 MG, BID
     Dates: start: 20100722
  3. CLOZAPINE [Suspect]
     Route: 048
     Dates: start: 20100804
  4. VENLAFAXINE [Concomitant]
     Dosage: 225 MG, QD
  5. CLOZAPINE [Suspect]
     Route: 048
     Dates: start: 20100722
  6. MIRTAZAPINE [Concomitant]
     Dosage: 30 MG, QD
  7. ZOPICLONE [Concomitant]
     Dosage: 15 MG, QD

REACTIONS (4)
  - OVERDOSE [None]
  - DECREASED APPETITE [None]
  - DEPRESSION [None]
  - SELF ESTEEM DECREASED [None]
